FAERS Safety Report 20258601 (Version 2)
Quarter: 2022Q1

REPORT INFORMATION
  Report Type: Spontaneous
  Country: FR (occurrence: FR)
  Receive Date: 20211230
  Receipt Date: 20220106
  Transmission Date: 20220423
  Serious: Yes (Hospitalization)
  Sender: FDA-Public Use
  Company Number: None

PATIENT
  Age: 80 Year
  Sex: Female
  Weight: 80 kg

DRUGS (5)
  1. AMIODARONE [Interacting]
     Active Substance: AMIODARONE
     Indication: Atrial fibrillation
     Dosage: 1 / D 5 DAYS A WEEK,UNIT DOSE:1000MILLIGRAM,THERAPY START DATE :THERAPY END DATE:ASKU
     Route: 048
  2. XARELTO [Interacting]
     Active Substance: RIVAROXABAN
     Indication: Pulmonary embolism
     Dosage: 20 MILLIGRAM DAILY; 1-0-0,XARELTO 20 MG FILM-COATED TABLETS,THERAPY START DATE :ASKU
     Route: 048
     Dates: end: 20211001
  3. FUROSEMIDE [Concomitant]
     Active Substance: FUROSEMIDE
     Dosage: LASILIX 40 MG, SCORED TABLET
  4. POTASSIUM CHLORIDE [Concomitant]
     Active Substance: POTASSIUM CHLORIDE
  5. ACETAMINOPHEN [Concomitant]
     Active Substance: ACETAMINOPHEN

REACTIONS (3)
  - Overdose [Recovered/Resolved]
  - Haemorrhagic diathesis [Recovered/Resolved]
  - Drug interaction [Unknown]

NARRATIVE: CASE EVENT DATE: 20211001
